FAERS Safety Report 24122464 (Version 1)
Quarter: 2024Q3

REPORT INFORMATION
  Report Type: Spontaneous
  Country: US (occurrence: US)
  Receive Date: 20240723
  Receipt Date: 20240723
  Transmission Date: 20241017
  Serious: No
  Sender: MERCK
  Company Number: US-009507513-2406USA008647

PATIENT
  Sex: Male

DRUGS (1)
  1. VERQUVO [Suspect]
     Active Substance: VERICIGUAT
     Route: 048

REACTIONS (2)
  - Therapeutic response unexpected [Unknown]
  - Product use in unapproved indication [Unknown]
